FAERS Safety Report 11056039 (Version 2)
Quarter: 2015Q2

REPORT INFORMATION
  Report Type: Spontaneous
  Country: BR (occurrence: BR)
  Receive Date: 20150422
  Receipt Date: 20150428
  Transmission Date: 20150821
  Serious: Yes (Death, Hospitalization, Other)
  Sender: FDA-Public Use
  Company Number: BR-GLAXOSMITHKLINE-BR2015GSK053033

PATIENT
  Age: 82 Year
  Sex: Female
  Weight: 64 kg

DRUGS (3)
  1. REVOLADE [Suspect]
     Active Substance: ELTROMBOPAG
     Indication: BONE MARROW FAILURE
     Dosage: 25 MG, QD
     Route: 048
     Dates: start: 201411
  2. REVOLADE [Suspect]
     Active Substance: ELTROMBOPAG
     Dosage: 50 MG,QD
  3. REVOLADE [Suspect]
     Active Substance: ELTROMBOPAG
     Dosage: 100MG, QD

REACTIONS (16)
  - Somnolence [Recovered/Resolved]
  - Overdose [Unknown]
  - Drug ineffective [Recovered/Resolved]
  - Pain [Recovered/Resolved]
  - Influenza [Recovered/Resolved]
  - Sepsis [Fatal]
  - Pneumonia [Recovered/Resolved]
  - Dyspepsia [Recovered/Resolved]
  - Hypotension [Recovered/Resolved]
  - Renal failure [Recovered/Resolved]
  - Decreased appetite [Recovered/Resolved]
  - Memory impairment [Recovered/Resolved]
  - Headache [Recovered/Resolved]
  - Vomiting [Recovered/Resolved]
  - Haemorrhage [Recovered/Resolved]
  - Diarrhoea [Recovered/Resolved]

NARRATIVE: CASE EVENT DATE: 201411
